FAERS Safety Report 4628237-7 (Version None)
Quarter: 2005Q2

REPORT INFORMATION
  Report Type: 
  Country: None (occurrence: None)
  Receive Date: 20050401
  Receipt Date: 20050318
  Transmission Date: 20051028
  Serious: Yes (Disabling, Other)
  Sender: FDA-Public Use
  Company Number: 2005-0008174

PATIENT
  Age: 52 Year
  Sex: Male
  Weight: 82.5547 kg

DRUGS (22)
  1. VIREAD [Suspect]
     Indication: HIV INFECTION
     Dosage: 300 MG, 1 IN 1 D, ORAL
     Route: 048
     Dates: end: 20041203
  2. VIDEX EC [Concomitant]
  3. LEXIVA (FOSAMPRENAVIR) [Concomitant]
  4. NORVIR [Concomitant]
  5. ACYCLOVIR [Concomitant]
  6. MULTIVITAMIN [Concomitant]
  7. PREVACID [Concomitant]
  8. NORTRIPTYLINE HCL [Concomitant]
  9. PAXIL CR [Concomitant]
  10. WELLBUTRIN XL [Concomitant]
  11. ENALAPRIL MALEATE [Concomitant]
  12. OXANDRIN [Concomitant]
  13. VITAMIN B COMPLEX (B-KOMPLEX ^LECIVA^) [Concomitant]
  14. METOCLOPRAMIDE [Concomitant]
  15. LAC-HYDRIN (AMMONIUM LACTATE) [Concomitant]
  16. DETROL LA [Concomitant]
  17. HYDROCHLOROTHIAZIDE [Concomitant]
  18. ECASA (ACETYLSALICYLIC ACID) [Concomitant]
  19. LAMICTAL [Concomitant]
  20. PRAVACHOL [Concomitant]
  21. ZESTRIL [Concomitant]
  22. ANDROGEL [Concomitant]

REACTIONS (4)
  - HYPOVOLAEMIA [None]
  - NAUSEA [None]
  - RENAL FAILURE ACUTE [None]
  - VOMITING [None]
